FAERS Safety Report 25979797 (Version 1)
Quarter: 2025Q4

REPORT INFORMATION
  Report Type: Spontaneous
  Country: US (occurrence: US)
  Receive Date: 20251030
  Receipt Date: 20251030
  Transmission Date: 20260118
  Serious: No
  Sender: MYLAN
  Company Number: US-MYLANLABS-2025M1087681

PATIENT
  Sex: Female
  Weight: 73.02 kg

DRUGS (3)
  1. VALSARTAN [Suspect]
     Active Substance: VALSARTAN
     Indication: Hypertension
     Dosage: 160 MILLIGRAM, PM (ONCE NIGHTLY)
     Dates: start: 202505
  2. ZETIA [Concomitant]
     Active Substance: EZETIMIBE
     Dosage: UNK, PM (ONCE AT NIGHT)
  3. OZEMPIC [Concomitant]
     Active Substance: SEMAGLUTIDE
     Dosage: UNK, QW (ONCE A WEEK)

REACTIONS (3)
  - Diarrhoea [Unknown]
  - Product odour abnormal [Not Recovered/Not Resolved]
  - Treatment noncompliance [Not Recovered/Not Resolved]

NARRATIVE: CASE EVENT DATE: 20250101
